FAERS Safety Report 12401454 (Version 1)
Quarter: 2016Q2

REPORT INFORMATION
  Report Type: Spontaneous
  Country: US (occurrence: None)
  Receive Date: 20160524
  Receipt Date: 20160524
  Transmission Date: 20160815
  Serious: Yes (Hospitalization)
  Sender: FDA-Public Use
  Company Number: None

PATIENT
  Age: 55 Year
  Sex: Male
  Weight: 110.3 kg

DRUGS (2)
  1. METHOTREXATE [Suspect]
     Active Substance: METHOTREXATE
     Dates: end: 20151012
  2. ONCASPAR [Suspect]
     Active Substance: PEGASPARGASE
     Dates: end: 20151013

REACTIONS (6)
  - Weight decreased [None]
  - Hypophagia [None]
  - Antithrombin III decreased [None]
  - Decreased appetite [None]
  - Chills [None]
  - Nausea [None]

NARRATIVE: CASE EVENT DATE: 20151020
